FAERS Safety Report 18555039 (Version 1)
Quarter: 2020Q4

REPORT INFORMATION
  Report Type: Spontaneous
  Country: UA (occurrence: UA)
  Receive Date: 20201127
  Receipt Date: 20201127
  Transmission Date: 20210114
  Serious: Yes (Other)
  Sender: FDA-Public Use
  Company Number: UA-009507513-2011UKR013040

PATIENT
  Age: 10 Year
  Sex: Male

DRUGS (13)
  1. ERTAPENEM SODIUM [Suspect]
     Active Substance: ERTAPENEM SODIUM
     Indication: BACTERIAL INFECTION
     Dosage: UNK
  2. AMICIL (AMOXICILLIN) [Suspect]
     Active Substance: AMOXICILLIN
     Indication: BACTERIAL INFECTION
     Dosage: UNK
  3. VORICONAZOLE. [Suspect]
     Active Substance: VORICONAZOLE
     Indication: ANTIFUNGAL TREATMENT
  4. AMPHOTERICIN B. [Suspect]
     Active Substance: AMPHOTERICIN B
     Indication: ANTIFUNGAL TREATMENT
     Dosage: UNK
     Dates: end: 2019
  5. POSACONAZOLE [Suspect]
     Active Substance: POSACONAZOLE
     Indication: ANTIFUNGAL TREATMENT
     Dosage: UNK
     Route: 048
  6. TARGOCID [Suspect]
     Active Substance: TEICOPLANIN
     Indication: BACTERIAL INFECTION
     Dosage: UNK
  7. CEFEPIME [Suspect]
     Active Substance: CEFEPIME HYDROCHLORIDE
     Indication: BACTERIAL INFECTION
     Dosage: UNK
  8. MERONEM [Suspect]
     Active Substance: MEROPENEM
     Indication: BACTERIAL INFECTION
     Dosage: UNK
  9. FLUCONAZOLE. [Suspect]
     Active Substance: FLUCONAZOLE
     Indication: ANTIFUNGAL TREATMENT
  10. CASPOFUNGIN ACETATE. [Suspect]
     Active Substance: CASPOFUNGIN ACETATE
     Dosage: 75 MILLIGRAM, QD
     Dates: start: 2019
  11. FOSFOMYCIN [Suspect]
     Active Substance: FOSFOMYCIN
     Indication: BACTERIAL INFECTION
     Dosage: UNK
  12. ZYVOX [Suspect]
     Active Substance: LINEZOLID
     Indication: BACTERIAL INFECTION
     Dosage: UNK
  13. TYGACIL [Suspect]
     Active Substance: TIGECYCLINE
     Indication: BACTERIAL INFECTION
     Dosage: UNK

REACTIONS (6)
  - Mechanical ventilation [Unknown]
  - Off label use [Unknown]
  - Nephropathy toxic [Unknown]
  - C-reactive protein increased [Unknown]
  - Drug ineffective for unapproved indication [Unknown]
  - Urine output decreased [Unknown]

NARRATIVE: CASE EVENT DATE: 2019
